FAERS Safety Report 12440992 (Version 4)
Quarter: 2017Q1

REPORT INFORMATION
  Report Type: Report from Study
  Country: JP (occurrence: JP)
  Receive Date: 20160607
  Receipt Date: 20170209
  Transmission Date: 20170428
  Serious: Yes (Death, Other)
  Sender: FDA-Public Use
  Company Number: JP-ALXN-A201604050AA

PATIENT

DRUGS (3)
  1. ARGATROBAN MONOHYDRATE [Concomitant]
     Indication: MYOCARDITIS
     Dosage: A PROPER DOSE,24HOURS
     Route: 042
     Dates: start: 20160214
  2. SOLIRIS [Suspect]
     Active Substance: ECULIZUMAB
     Indication: HAEMOLYTIC URAEMIC SYNDROME
     Dosage: 600 MG, UNK
     Route: 042
     Dates: start: 20160502, end: 20160522
  3. HANP [Concomitant]
     Active Substance: CARPERITIDE
     Indication: MYOCARDITIS
     Dosage: A PROPER DOSE,24HOURS
     Route: 042
     Dates: start: 20160202, end: 20160406

REACTIONS (3)
  - Drug ineffective [Unknown]
  - Multiple organ dysfunction syndrome [Fatal]
  - Corynebacterium infection [Not Recovered/Not Resolved]

NARRATIVE: CASE EVENT DATE: 20160523
